FAERS Safety Report 13564955 (Version 2)
Quarter: 2017Q2

REPORT INFORMATION
  Report Type: Spontaneous
  Country: US (occurrence: US)
  Receive Date: 20170519
  Receipt Date: 20170613
  Transmission Date: 20170830
  Serious: Yes (Other)
  Sender: FDA-Public Use
  Company Number: US-BAYER-2017-093581

PATIENT
  Age: 29 Year
  Sex: Female

DRUGS (2)
  1. DMPA [Concomitant]
     Dosage: UNK
     Dates: start: 20170510
  2. MIRENA [Suspect]
     Active Substance: LEVONORGESTREL
     Indication: CONTRACEPTION
     Dosage: 20 MCG/24HR, CONT
     Route: 015
     Dates: start: 201205

REACTIONS (5)
  - Complication of device removal [None]
  - Embedded device [None]
  - Procedural pain [None]
  - Device breakage [None]
  - Device difficult to use [None]

NARRATIVE: CASE EVENT DATE: 201705
